FAERS Safety Report 8723515 (Version 4)
Quarter: 2013Q3

REPORT INFORMATION
  Report Type: Report from Study
  Country: JP (occurrence: JP)
  Receive Date: 20120814
  Receipt Date: 20130717
  Transmission Date: 20140515
  Serious: Yes (Hospitalization, Other)
  Sender: FDA-Public Use
  Company Number: JP-MERCK-1208JPN004858

PATIENT
  Age: 62 Year
  Sex: Male
  Weight: 70 kg

DRUGS (15)
  1. PEGINTRON [Suspect]
     Indication: CHRONIC HEPATITIS C
     Dosage: 1.5MICROGRAMPERKILOGRAMDAILY DOSE UNKNOWN
     Route: 058
     Dates: start: 20120412, end: 20120502
  2. PEGINTRON [Suspect]
     Dosage: 1.25 MICROGRAM PER KILOGRAM, QW
     Route: 058
     Dates: start: 20120510, end: 20120524
  3. REBETOL [Suspect]
     Indication: CHRONIC HEPATITIS C
     Dosage: 800 MG, QD
     Route: 048
     Dates: start: 20120412, end: 20120426
  4. REBETOL [Suspect]
     Dosage: 600 MG, QD
     Route: 048
     Dates: start: 20120427, end: 20120501
  5. REBETOL [Suspect]
     Dosage: 200 MG, QD
     Route: 048
     Dates: start: 20120502, end: 20120509
  6. REBETOL [Suspect]
     Dosage: 200MG OR 100 MG/ON ALTERNATE DAY,DAILY DOSE UNKNOWN
     Route: 048
     Dates: start: 20120510, end: 20120530
  7. TELAVIC [Suspect]
     Indication: CHRONIC HEPATITIS C
     Dosage: 2250 MG, QD
     Route: 048
     Dates: start: 20120412, end: 20120524
  8. TELAVIC [Suspect]
     Dosage: 1500 MG, QD
     Route: 048
     Dates: start: 20120525, end: 20120530
  9. URSO [Concomitant]
     Indication: CHRONIC HEPATITIS C
     Dosage: 600 MG, QD,FORMULATION:POR
     Route: 048
  10. PARIET [Concomitant]
     Dosage: 10 MG, QD,FORMULATION:POR
     Route: 048
  11. AMLODIN OD [Concomitant]
     Dosage: 5 MG, QD,FORMULATION:POR
     Route: 048
     Dates: end: 20120531
  12. AMOBAN [Concomitant]
     Dosage: 7.5 MG, QD,FORMULATION:POR
     Route: 048
     Dates: end: 20120531
  13. JANUVIA TABLETS 50MG [Concomitant]
     Dosage: 50 MG, QD,FORMULATION:POR
     Route: 048
     Dates: end: 20120531
  14. AMARYL [Concomitant]
     Dosage: 3 MG, QD,FORMULATION:POR
     Dates: start: 20120416, end: 20120517
  15. LOXONIN [Concomitant]
     Indication: PROPHYLAXIS
     Dosage: 120 MG, QD,FORMULATION:POR
     Route: 048
     Dates: start: 20120419, end: 20120531

REACTIONS (3)
  - Renal disorder [Recovered/Resolved]
  - Anaemia [Recovering/Resolving]
  - Decreased appetite [Recovered/Resolved]
